FAERS Safety Report 6668545-1 (Version None)
Quarter: 2010Q2

REPORT INFORMATION
  Report Type: 
  Country: None (occurrence: None)
  Receive Date: 20100406
  Receipt Date: 20100330
  Transmission Date: 20101027
  Serious: Yes (Life-Threatening)
  Sender: FDA-Public Use
  Company Number: CH-SANOFI-AVENTIS-2010SA018450

PATIENT
  Age: 59 Year
  Sex: Female
  Weight: 83 kg

DRUGS (3)
  1. ARAVA [Suspect]
     Route: 048
     Dates: start: 20091201, end: 20091217
  2. ETANERCEPT [Suspect]
     Route: 058
     Dates: start: 20091001, end: 20091217
  3. REMICADE [Suspect]
     Dosage: EVERY 8 WEEKS
     Route: 041
     Dates: start: 20090615, end: 20091217

REACTIONS (1)
  - BREAST CANCER FEMALE [None]
